FAERS Safety Report 5134088-X (Version None)
Quarter: 2006Q4

REPORT INFORMATION
  Report Type: 
  Country: None (occurrence: None)
  Receive Date: 20061024
  Receipt Date: 20060706
  Transmission Date: 20070319
  Serious: Yes (Other)
  Sender: FDA-Public Use
  Company Number: US-SANOFI-SYNTHELABO-A03200604360

PATIENT
  Sex: Male
  Weight: 78.91 kg

DRUGS (2)
  1. ANTIHYPERTENSIVE NOS [Concomitant]
     Dosage: UNK
     Route: 048
  2. PLAVIX [Suspect]
     Indication: ARTERIAL OCCLUSIVE DISEASE
     Route: 048
     Dates: start: 20060317, end: 20060505

REACTIONS (2)
  - MACULAR DEGENERATION [None]
  - VISUAL ACUITY REDUCED [None]
